FAERS Safety Report 6385005-6 (Version None)
Quarter: 2009Q4

REPORT INFORMATION
  Report Type: 
  Country: None (occurrence: None)
  Receive Date: 20091002
  Receipt Date: 20090921
  Transmission Date: 20100525
  Serious: Yes (Hospitalization)
  Sender: FDA-Public Use
  Company Number: PHHY2009FR41263

PATIENT
  Age: 62 Year
  Sex: Male

DRUGS (3)
  1. NEORAL [Suspect]
     Indication: CORD BLOOD TRANSPLANT THERAPY
     Dosage: 50 MG, BID
     Route: 048
     Dates: start: 20090503, end: 20090507
  2. FLUDARA [Suspect]
     Indication: CORD BLOOD TRANSPLANT THERAPY
     Dosage: 80 MG, QD
     Route: 042
     Dates: start: 20090501, end: 20090505
  3. ENDOXAN [Suspect]
     Indication: CORD BLOOD TRANSPLANT THERAPY
     Dosage: 4.9 G, ONCE/SINGLE
     Route: 042
     Dates: start: 20090501

REACTIONS (6)
  - APHASIA [None]
  - CONFUSIONAL STATE [None]
  - DRAIN REMOVAL [None]
  - EXTRAPYRAMIDAL DISORDER [None]
  - HYPOKINESIA [None]
  - NERVOUS SYSTEM DISORDER [None]
